FAERS Safety Report 16543501 (Version 2)
Quarter: 2019Q4

REPORT INFORMATION
  Report Type: Spontaneous
  Country: US (occurrence: US)
  Receive Date: 20190709
  Receipt Date: 20191007
  Transmission Date: 20200122
  Serious: Yes (Other)
  Sender: FDA-Public Use
  Company Number: US-ASTRAZENECA-2019SE95810

PATIENT
  Age: 22358 Day
  Sex: Male
  Weight: 145.2 kg

DRUGS (21)
  1. TRAMADOL. [Concomitant]
     Active Substance: TRAMADOL
  2. NEXIUM [Suspect]
     Active Substance: ESOMEPRAZOLE MAGNESIUM
     Indication: GASTROOESOPHAGEAL REFLUX DISEASE
     Route: 048
     Dates: start: 2009, end: 2013
  3. GLIMEPIRIDE. [Concomitant]
     Active Substance: GLIMEPIRIDE
     Indication: DIABETES MELLITUS
  4. AMLODIPINE [Concomitant]
     Active Substance: AMLODIPINE BESYLATE
  5. NEXIUM [Suspect]
     Active Substance: ESOMEPRAZOLE MAGNESIUM
     Indication: GASTROOESOPHAGEAL REFLUX DISEASE
     Dosage: GENERIC
     Route: 065
     Dates: start: 2009, end: 2013
  6. VALSARTAN. [Concomitant]
     Active Substance: VALSARTAN
     Indication: MYOCARDIAL INFARCTION
  7. FUROSEMIDE. [Concomitant]
     Active Substance: FUROSEMIDE
  8. NEXIUM [Suspect]
     Active Substance: ESOMEPRAZOLE MAGNESIUM
     Indication: GASTROOESOPHAGEAL REFLUX DISEASE
     Route: 048
     Dates: start: 200311, end: 201510
  9. DIOVAN [Concomitant]
     Active Substance: VALSARTAN
  10. MODAFINIL. [Concomitant]
     Active Substance: MODAFINIL
  11. OXYCODONE ACETAMINOPHEN [Concomitant]
     Active Substance: ACETAMINOPHEN\OXYCODONE HYDROCHLORIDE
  12. AZITHROMYCIN ANHYDROUS. [Concomitant]
     Active Substance: AZITHROMYCIN ANHYDROUS
  13. TRILIPIX [Concomitant]
     Active Substance: FENOFIBRIC ACID
  14. ASPIRIN. [Concomitant]
     Active Substance: ASPIRIN
  15. LOVAZA [Concomitant]
     Active Substance: OMEGA-3-ACID ETHYL ESTERS
  16. METFORMIN [Concomitant]
     Active Substance: METFORMIN HYDROCHLORIDE
  17. CEPHALEXIN. [Concomitant]
     Active Substance: CEPHALEXIN
  18. BENAZEPRIL [Concomitant]
     Active Substance: BENAZEPRIL HYDROCHLORIDE
  19. JANUVIA [Concomitant]
     Active Substance: SITAGLIPTIN PHOSPHATE
  20. ATORVASTATIN [Concomitant]
     Active Substance: ATORVASTATIN
  21. ORPHENADRINE [Concomitant]
     Active Substance: ORPHENADRINE

REACTIONS (4)
  - End stage renal disease [Unknown]
  - Rebound acid hypersecretion [Unknown]
  - Chronic kidney disease [Not Recovered/Not Resolved]
  - Renal failure [Unknown]

NARRATIVE: CASE EVENT DATE: 20140616
